FAERS Safety Report 25850263 (Version 2)
Quarter: 2025Q4

REPORT INFORMATION
  Report Type: Report from Study
  Country: US (occurrence: US)
  Receive Date: 20250926
  Receipt Date: 20251010
  Transmission Date: 20260117
  Serious: Yes (Death, Hospitalization)
  Sender: JAZZ
  Company Number: US-JAZZ PHARMACEUTICALS-2025-US-022628

PATIENT
  Age: 30 Year
  Sex: Female

DRUGS (3)
  1. EPIDIOLEX [Suspect]
     Active Substance: CANNABIDIOL
     Indication: Lennox-Gastaut syndrome
     Dosage: 3.5 MILLILITER, BID
     Dates: start: 202404
  2. EPIDIOLEX [Suspect]
     Active Substance: CANNABIDIOL
     Indication: Muscle spasms
     Dosage: 3.5 MILLILITER, BID
     Dates: start: 202404
  3. EPIDIOLEX [Suspect]
     Active Substance: CANNABIDIOL
     Indication: Neuronal ceroid lipofuscinosis

REACTIONS (2)
  - Death [Fatal]
  - Hospitalisation [Unknown]

NARRATIVE: CASE EVENT DATE: 20251002
